FAERS Safety Report 16427356 (Version 2)
Quarter: 2019Q3

REPORT INFORMATION
  Report Type: Spontaneous
  Country: US (occurrence: US)
  Receive Date: 20190613
  Receipt Date: 20190724
  Transmission Date: 20191004
  Serious: Yes (Other)
  Sender: FDA-Public Use
  Company Number: US-009507513-1906USA004731

PATIENT
  Sex: Female

DRUGS (1)
  1. NEXPLANON [Suspect]
     Active Substance: ETONOGESTREL
     Indication: CONTRACEPTION
     Dosage: 68 MILLIGRAM, ONE TIME
     Route: 059
     Dates: start: 20160511, end: 201904

REACTIONS (3)
  - Pain of skin [Unknown]
  - Device kink [Recovered/Resolved]
  - Uterine haemorrhage [Not Recovered/Not Resolved]
